FAERS Safety Report 17984196 (Version 1)
Quarter: 2020Q3

REPORT INFORMATION
  Report Type: Spontaneous
  Country: GB (occurrence: GB)
  Receive Date: 20200706
  Receipt Date: 20200706
  Transmission Date: 20201103
  Serious: Yes (Death, Other)
  Sender: FDA-Public Use
  Company Number: GB-BIOVITRUM-2020GB3386

PATIENT
  Age: 66 Year
  Sex: Female

DRUGS (20)
  1. TOCILIZUMAB. [Suspect]
     Active Substance: TOCILIZUMAB
     Indication: IMMUNE EFFECTOR CELL-ASSOCIATED NEUROTOXICITY SYNDROME
  2. SYLVANT [Suspect]
     Active Substance: SILTUXIMAB
     Indication: CYTOKINE RELEASE SYNDROME
     Dosage: UNK
     Dates: start: 20191230
  3. DEXAMETHASONE. [Suspect]
     Active Substance: DEXAMETHASONE
     Indication: IMMUNE EFFECTOR CELL-ASSOCIATED NEUROTOXICITY SYNDROME
     Dosage: UNK
     Dates: start: 20200121
  4. PREDNISOLONE. [Concomitant]
     Active Substance: PREDNISOLONE
     Indication: MYASTHENIC SYNDROME
  5. FLUCONAZOLE. [Concomitant]
     Active Substance: FLUCONAZOLE
     Indication: LYMPHOCYTE ADOPTIVE THERAPY
     Dosage: UNK
     Dates: start: 20200106
  6. SYLVANT [Suspect]
     Active Substance: SILTUXIMAB
     Dosage: 100 MILLIGRAM
     Dates: start: 20200210
  7. ZARZIO [Concomitant]
     Active Substance: FILGRASTIM
     Indication: LYMPHOCYTE ADOPTIVE THERAPY
     Dosage: UNK
     Dates: start: 20200130
  8. METOCLOPRAMIDE. [Concomitant]
     Active Substance: METOCLOPRAMIDE
     Indication: LYMPHOCYTE ADOPTIVE THERAPY
     Dosage: UNK
     Dates: start: 20200103
  9. ACICLOVIR [Concomitant]
     Active Substance: ACYCLOVIR
     Indication: LYMPHOCYTE ADOPTIVE THERAPY
     Dosage: UNK
     Dates: start: 20200103
  10. DEXAMETHASONE. [Suspect]
     Active Substance: DEXAMETHASONE
     Indication: IMMUNE EFFECTOR CELL-ASSOCIATED NEUROTOXICITY SYNDROME
  11. AZATHIOPRINE. [Concomitant]
     Active Substance: AZATHIOPRINE
     Indication: MYASTHENIC SYNDROME
  12. METHYLPREDNISOLONE. [Suspect]
     Active Substance: METHYLPREDNISOLONE
     Indication: IMMUNE EFFECTOR CELL-ASSOCIATED NEUROTOXICITY SYNDROME
  13. PREDNISOLONE. [Concomitant]
     Active Substance: PREDNISOLONE
     Indication: MYASTHENIC SYNDROME
     Dosage: ()
     Dates: start: 20200210
  14. LEVETIRACETAM. [Concomitant]
     Active Substance: LEVETIRACETAM
     Indication: LYMPHOCYTE ADOPTIVE THERAPY
     Dosage: UNK
     Dates: start: 20200108
  15. ANAKINRA [Suspect]
     Active Substance: ANAKINRA
     Indication: IMMUNE EFFECTOR CELL-ASSOCIATED NEUROTOXICITY SYNDROME
     Dosage: UNK
     Dates: start: 20200124
  16. TOCILIZUMAB. [Suspect]
     Active Substance: TOCILIZUMAB
     Indication: CYTOKINE RELEASE SYNDROME
     Dosage: 4 TIMES
     Dates: start: 20200113, end: 20200120
  17. METHYLPREDNISOLONE. [Suspect]
     Active Substance: METHYLPREDNISOLONE
     Indication: IMMUNE EFFECTOR CELL-ASSOCIATED NEUROTOXICITY SYNDROME
  18. ANAKINRA [Suspect]
     Active Substance: ANAKINRA
     Indication: IMMUNE EFFECTOR CELL-ASSOCIATED NEUROTOXICITY SYNDROME
  19. CIPROFLOXACIN. [Concomitant]
     Active Substance: CIPROFLOXACIN
     Indication: LYMPHOCYTE ADOPTIVE THERAPY
     Dosage: UNK
     Dates: start: 20200103
  20. ONDANSETRON [Concomitant]
     Active Substance: ONDANSETRON
     Indication: LYMPHOCYTE ADOPTIVE THERAPY
     Dosage: UNK
     Dates: start: 20200103

REACTIONS (6)
  - Disease progression [Fatal]
  - Cytokine release syndrome [Unknown]
  - Product use in unapproved indication [Unknown]
  - Off label use [Unknown]
  - Toxicity to various agents [Fatal]
  - Immune effector cell-associated neurotoxicity syndrome [Unknown]

NARRATIVE: CASE EVENT DATE: 20200301
